FAERS Safety Report 10272640 (Version 1)
Quarter: 2014Q2

REPORT INFORMATION
  Report Type: Spontaneous
  Country: US (occurrence: None)
  Receive Date: 20140630
  Receipt Date: 20140630
  Transmission Date: 20141212
  Serious: Yes (Death, Hospitalization)
  Sender: FDA-Public Use
  Company Number: US-H14001-14-00112

PATIENT
  Age: 17 Year
  Sex: Female

DRUGS (3)
  1. LITHIUM CARBONATE [Suspect]
     Indication: AFFECTIVE DISORDER
  2. 25II-NBOME [Suspect]
     Indication: PRODUCT USED FOR UNKNOWN INDICATION
  3. TOPIRAMATE (TOPIRAMATE) (TOPIRAMATE) [Concomitant]

REACTIONS (10)
  - Status epilepticus [None]
  - Hyperthermia [None]
  - Rhabdomyolysis [None]
  - Multi-organ failure [None]
  - Metabolic acidosis [None]
  - Renal failure acute [None]
  - Hypokalaemia [None]
  - Hypocalcaemia [None]
  - Brain oedema [None]
  - Serotonin syndrome [None]
